FAERS Safety Report 20223273 (Version 4)
Quarter: 2022Q1

REPORT INFORMATION
  Report Type: Report from Study
  Country: CZ (occurrence: CZ)
  Receive Date: 20211223
  Receipt Date: 20220221
  Transmission Date: 20220424
  Serious: Yes (Hospitalization, Other)
  Sender: FDA-Public Use
  Company Number: CZ-CELGENE-CZE-20211205859

PATIENT
  Sex: Male
  Weight: 94 kg

DRUGS (46)
  1. OZANIMOD [Suspect]
     Active Substance: OZANIMOD
     Indication: Colitis ulcerative
     Route: 048
     Dates: start: 20181018, end: 20181122
  2. OZANIMOD [Suspect]
     Active Substance: OZANIMOD
     Route: 048
     Dates: start: 20181122, end: 20181218
  3. OZANIMOD [Suspect]
     Active Substance: OZANIMOD
     Route: 048
     Dates: start: 20181218, end: 20190207
  4. OZANIMOD [Suspect]
     Active Substance: OZANIMOD
     Route: 048
     Dates: start: 20190321, end: 20190613
  5. OZANIMOD [Suspect]
     Active Substance: OZANIMOD
     Route: 048
     Dates: start: 20190613, end: 20190906
  6. OZANIMOD [Suspect]
     Active Substance: OZANIMOD
     Route: 048
     Dates: start: 20190906, end: 20191205
  7. OZANIMOD [Suspect]
     Active Substance: OZANIMOD
     Route: 048
     Dates: start: 20191205, end: 20200220
  8. OZANIMOD [Suspect]
     Active Substance: OZANIMOD
     Route: 048
     Dates: start: 20200220, end: 20200514
  9. OZANIMOD [Suspect]
     Active Substance: OZANIMOD
     Route: 048
     Dates: start: 20200514, end: 20200806
  10. OZANIMOD [Suspect]
     Active Substance: OZANIMOD
     Route: 048
     Dates: start: 20200806, end: 20201105
  11. OZANIMOD [Suspect]
     Active Substance: OZANIMOD
     Route: 048
     Dates: start: 20201105, end: 20210121
  12. OZANIMOD [Suspect]
     Active Substance: OZANIMOD
     Route: 048
     Dates: start: 20210121, end: 20210415
  13. OZANIMOD [Suspect]
     Active Substance: OZANIMOD
     Route: 048
     Dates: start: 20210415, end: 20210712
  14. OZANIMOD [Suspect]
     Active Substance: OZANIMOD
     Route: 048
     Dates: start: 20210712, end: 20210930
  15. OZANIMOD [Suspect]
     Active Substance: OZANIMOD
     Route: 048
     Dates: start: 20210930, end: 20211217
  16. OZANIMOD [Suspect]
     Active Substance: OZANIMOD
     Route: 048
     Dates: start: 20190207, end: 20190321
  17. OZANIMOD [Suspect]
     Active Substance: OZANIMOD
     Route: 048
     Dates: start: 20211217
  18. OZANIMOD [Suspect]
     Active Substance: OZANIMOD
     Route: 048
     Dates: start: 20211110
  19. OZANIMOD [Suspect]
     Active Substance: OZANIMOD
     Route: 048
     Dates: end: 20211112
  20. ASACOL [Concomitant]
     Active Substance: MESALAMINE
     Indication: Colitis ulcerative
     Dosage: 4800 MILLIGRAM
     Route: 048
     Dates: start: 20170919
  21. CORTIMENT [Concomitant]
     Indication: Colitis ulcerative
     Dosage: 4.5 MILLIGRAM
     Route: 048
     Dates: start: 20180103, end: 20181219
  22. METFORMIN HYDROCHLORIDE\VILDAGLIPTIN [Concomitant]
     Active Substance: METFORMIN HYDROCHLORIDE\VILDAGLIPTIN
     Indication: Diabetes mellitus
     Dosage: 20000 MILLIGRAM
     Route: 048
     Dates: start: 20180619, end: 20190205
  23. SALINIC ENEMA [Concomitant]
     Indication: Bowel preparation
     Dosage: 1 OTHER
     Route: 054
     Dates: start: 20181018, end: 20181018
  24. Paralen Grip [Concomitant]
     Indication: Nasopharyngitis
     Dosage: 2 OTHER
     Route: 048
     Dates: start: 20190105, end: 20190106
  25. JARDIANCE [Concomitant]
     Active Substance: EMPAGLIFLOZIN
     Indication: Diabetes mellitus
     Dosage: 20 MILLIGRAM
     Route: 048
     Dates: start: 20190206, end: 201905
  26. ESCITALOPRAM OXALATE [Concomitant]
     Active Substance: ESCITALOPRAM OXALATE
     Indication: Anxiety disorder
     Dosage: 20 MILLIGRAM
     Route: 048
     Dates: start: 20190904
  27. ESCITALOPRAM OXALATE [Concomitant]
     Active Substance: ESCITALOPRAM OXALATE
     Indication: Depression
  28. BROMAZEPAM [Concomitant]
     Active Substance: BROMAZEPAM
     Indication: Anxiety disorder
     Dosage: 1.5 MILLIGRAM
     Route: 048
     Dates: start: 20190904, end: 201911
  29. BROMAZEPAM [Concomitant]
     Active Substance: BROMAZEPAM
     Indication: Depression
  30. PICOPREP [Concomitant]
     Active Substance: ANHYDROUS CITRIC ACID\MAGNESIUM OXIDE\SODIUM PICOSULFATE
     Indication: Bowel preparation
     Dosage: 1000 MILLILITER
     Route: 048
     Dates: start: 20190906, end: 20190906
  31. PICOPREP [Concomitant]
     Active Substance: ANHYDROUS CITRIC ACID\MAGNESIUM OXIDE\SODIUM PICOSULFATE
     Dosage: 2000 MILLILITER
     Route: 048
     Dates: start: 20200818, end: 20200818
  32. PICOPREP [Concomitant]
     Active Substance: ANHYDROUS CITRIC ACID\MAGNESIUM OXIDE\SODIUM PICOSULFATE
     Dosage: 1000 MILLILITER
     Route: 048
     Dates: start: 20210711, end: 20210712
  33. PROPOFOL [Concomitant]
     Active Substance: PROPOFOL
     Indication: Sedative therapy
     Dosage: 150 MILLIGRAM
     Route: 041
     Dates: start: 20190906, end: 20190906
  34. PROPOFOL [Concomitant]
     Active Substance: PROPOFOL
     Dosage: 200 MILLIGRAM
     Route: 041
     Dates: start: 20200818, end: 20200818
  35. PROPOFOL [Concomitant]
     Active Substance: PROPOFOL
     Dosage: 180 MILLIGRAM
     Route: 041
     Dates: start: 20210712, end: 20210712
  36. SUFENTA [Concomitant]
     Active Substance: SUFENTANIL CITRATE
     Indication: Sedative therapy
     Dosage: 10 MKG
     Route: 041
     Dates: start: 20191006, end: 20191006
  37. SUFENTA [Concomitant]
     Active Substance: SUFENTANIL CITRATE
     Dosage: 10 MKG
     Route: 041
     Dates: start: 20200818, end: 20200818
  38. SUFENTA [Concomitant]
     Active Substance: SUFENTANIL CITRATE
     Dosage: 5 MQ
     Route: 041
     Dates: start: 20210712, end: 20210712
  39. MICARDIS [Concomitant]
     Active Substance: TELMISARTAN
     Indication: Hypertension
     Dosage: 80 MILLIGRAM
     Route: 048
     Dates: start: 201710
  40. SYNJARDY [Concomitant]
     Active Substance: EMPAGLIFLOZIN\METFORMIN HYDROCHLORIDE
     Indication: Diabetes mellitus
     Dosage: 5/1000
     Route: 048
     Dates: start: 201905
  41. MODERNA COVID-19 VACCINE [Concomitant]
     Active Substance: ELASOMERAN
     Indication: COVID-19
     Dosage: .5 MILLIGRAM
     Route: 030
     Dates: start: 20210419, end: 20210419
  42. MODERNA COVID-19 VACCINE [Concomitant]
     Active Substance: ELASOMERAN
     Dosage: .5 MILLIGRAM
     Route: 030
     Dates: start: 20210531, end: 20210531
  43. DOXYCYCLINE [Concomitant]
     Active Substance: DOXYCYCLINE
     Indication: Lyme disease
     Dosage: 4800 MILLIGRAM
     Route: 048
     Dates: start: 20210615, end: 20210706
  44. DOXYCYCLINE [Concomitant]
     Active Substance: DOXYCYCLINE
     Dosage: 4800 MILLIGRAM
     Route: 048
     Dates: start: 20210727, end: 20210817
  45. CORMINATY [Concomitant]
     Indication: Prophylaxis
     Dosage: .3 MILLILITER
     Route: 030
     Dates: start: 20211025, end: 20211025
  46. CORVAPRO [Concomitant]
     Indication: Dyslipidaemia
     Dosage: 10 MILLIGRAM
     Route: 048
     Dates: start: 20190731

REACTIONS (1)
  - Basal cell carcinoma [Recovered/Resolved]

NARRATIVE: CASE EVENT DATE: 20210801
